FAERS Safety Report 24116903 (Version 1)
Quarter: 2024Q3

REPORT INFORMATION
  Report Type: Spontaneous
  Country: IT (occurrence: IT)
  Receive Date: 20240722
  Receipt Date: 20240722
  Transmission Date: 20241017
  Serious: Yes (Hospitalization)
  Sender: ROCHE
  Company Number: None

PATIENT
  Age: 78 Year
  Sex: Male

DRUGS (4)
  1. BEVACIZUMAB [Suspect]
     Active Substance: BEVACIZUMAB
     Indication: Colon cancer stage IV
     Dosage: START OF THERAPY 01/09/2024 - THERAPY EVERY 14 DAYS - 1ST CYCLE
     Route: 042
     Dates: start: 20240109, end: 20240109
  2. FLUOROURACIL [Suspect]
     Active Substance: FLUOROURACIL
     Indication: Colon cancer stage IV
     Dosage: START OF THERAPY 01/09/2024 - THERAPY EVERY 14 DAYS - 1ST CYCLE - BOLUS INFUSION
     Route: 042
     Dates: start: 20240109, end: 20240109
  3. FLUOROURACIL [Suspect]
     Active Substance: FLUOROURACIL
     Dosage: START OF THERAPY 01/09/2024 - THERAPY EVERY 14 DAYS - 1ST CYCLE - CONTINUOUS INFUSION FOR 46 HOURS
     Route: 042
     Dates: start: 20240109, end: 20240111
  4. IRINOTECAN [Suspect]
     Active Substance: IRINOTECAN
     Indication: Colon cancer stage IV
     Dosage: START OF THERAPY 01/09/2024 - THERAPY EVERY 14 DAYS - 1ST CYCLE
     Route: 042
     Dates: start: 20240109, end: 20240109

REACTIONS (2)
  - Abdominal pain [Recovering/Resolving]
  - Faecaloma [Recovering/Resolving]

NARRATIVE: CASE EVENT DATE: 20240113
